FAERS Safety Report 7538132-1 (Version None)
Quarter: 2011Q2

REPORT INFORMATION
  Report Type: 
  Country: None (occurrence: None)
  Receive Date: 20110609
  Receipt Date: 20010125
  Transmission Date: 20111010
  Serious: Yes (Death)
  Sender: FDA-Public Use
  Company Number: PHFR2001GB00671

PATIENT
  Sex: Male

DRUGS (10)
  1. DOXAZOSIN MESYLATE [Concomitant]
     Indication: HYPERTENSION
  2. MULTI-VITAMINS VITAFIT [Concomitant]
     Indication: MYOPATHY
  3. NEORAL [Suspect]
     Indication: RENAL TRANSPLANT
     Dosage: 175 MG, DAILY
     Route: 048
     Dates: start: 19950920
  4. LEVOTHYROXINE SODIUM [Concomitant]
     Indication: HYPOTHYROIDISM
  5. NEORAL [Suspect]
     Dosage: 125 MG, DAILY
     Route: 048
  6. PREDNISOLONE [Concomitant]
     Indication: IMMUNOSUPPRESSION
     Dosage: 5 MG, DAILY
  7. FOLIC ACID [Concomitant]
     Indication: ANAEMIA
  8. ASPIRIN [Concomitant]
     Indication: PERIPHERAL VASCULAR DISORDER
  9. CO-AMILOFRUSE [Concomitant]
     Indication: HYPERTENSION
  10. DIDRONEL PMO ^PROCTER AND GAMBLE^ [Concomitant]
     Indication: OSTEOPOROSIS

REACTIONS (2)
  - SUDDEN CARDIAC DEATH [None]
  - CIRCULATORY COLLAPSE [None]
